FAERS Safety Report 22383380 (Version 2)
Quarter: 2023Q2

REPORT INFORMATION
  Report Type: Report from Study
  Country: US (occurrence: US)
  Receive Date: 20230530
  Receipt Date: 20230613
  Transmission Date: 20230721
  Serious: Yes (Hospitalization)
  Sender: FDA-Public Use
  Company Number: US-SA-SAC20230524001073

PATIENT
  Age: 58 Year
  Sex: Female
  Weight: 82.1 kg

DRUGS (4)
  1. ISATUXIMAB [Suspect]
     Active Substance: ISATUXIMAB
     Indication: Plasma cell myeloma refractory
     Dosage: 10 MG/KG, BIW
     Route: 042
     Dates: start: 20230516, end: 20230516
  2. ISATUXIMAB [Suspect]
     Active Substance: ISATUXIMAB
     Dosage: 10 MG/KG, BIW
     Route: 042
     Dates: start: 20230214, end: 20230214
  3. BENDAMUSTINE HYDROCHLORIDE [Suspect]
     Active Substance: BENDAMUSTINE HYDROCHLORIDE
     Indication: Plasma cell myeloma refractory
     Dosage: 100 MG/M2, DAY 1, 2 OF EVERY 28 DAY CYCLE
     Route: 042
     Dates: start: 20230517, end: 20230517
  4. BENDAMUSTINE HYDROCHLORIDE [Suspect]
     Active Substance: BENDAMUSTINE HYDROCHLORIDE
     Dosage: 100 MG/M2, DAY 1, 2 OF EVERY 28 DAY CYCLE
     Route: 042
     Dates: start: 20230214, end: 20230214

REACTIONS (1)
  - Febrile neutropenia [Not Recovered/Not Resolved]

NARRATIVE: CASE EVENT DATE: 20230522
